FAERS Safety Report 8085534-3 (Version None)
Quarter: 2012Q1

REPORT INFORMATION
  Report Type: 
  Country: None (occurrence: None)
  Receive Date: 20120128
  Receipt Date: 20110502
  Transmission Date: 20120608
  Serious: Yes (Hospitalization)
  Sender: FDA-Public Use
  Company Number: US-ABBOTT-11P-163-0712734-00

PATIENT
  Sex: Female
  Weight: 90.8 kg

DRUGS (4)
  1. IMIPRAMINE [Concomitant]
     Indication: PANIC ATTACK
  2. LIPITOR [Concomitant]
     Indication: BLOOD CHOLESTEROL INCREASED
  3. HUMIRA [Suspect]
     Indication: RHEUMATOID ARTHRITIS
     Dates: start: 20101101
  4. LOPRESSOR [Concomitant]
     Indication: HYPERTENSION

REACTIONS (3)
  - OSTEONECROSIS [None]
  - RASH PAPULAR [None]
  - RASH [None]
